FAERS Safety Report 8445442-2 (Version None)
Quarter: 2012Q2

REPORT INFORMATION
  Report Type: 
  Country: None (occurrence: None)
  Receive Date: 20120618
  Receipt Date: 20120418
  Transmission Date: 20120825
  Serious: Yes (Other)
  Sender: FDA-Public Use
  Company Number: US-TEVA-334502USA

PATIENT
  Sex: Male

DRUGS (1)
  1. FENTORA [Suspect]
     Dosage: 3 - 4 YEARS
     Route: 002

REACTIONS (2)
  - WITHDRAWAL SYNDROME [None]
  - TREMOR [None]
